FAERS Safety Report 24912700 (Version 1)
Quarter: 2025Q1

REPORT INFORMATION
  Report Type: Spontaneous
  Country: US (occurrence: US)
  Receive Date: 20250131
  Receipt Date: 20250131
  Transmission Date: 20250409
  Serious: No
  Sender: PFIZER
  Company Number: US-PFIZER INC-PV202500012304

PATIENT
  Age: 60 Year
  Sex: Male

DRUGS (1)
  1. LITFULO [Suspect]
     Active Substance: RITLECITINIB TOSYLATE

REACTIONS (4)
  - Paraesthesia [Unknown]
  - Tremor [Unknown]
  - Pain in extremity [Unknown]
  - Muscular weakness [Unknown]
